FAERS Safety Report 6644697-4 (Version None)
Quarter: 2010Q1

REPORT INFORMATION
  Report Type: 
  Country: None (occurrence: None)
  Receive Date: 20100318
  Receipt Date: 20100318
  Transmission Date: 20100710
  Serious: Yes (Life-Threatening)
  Sender: FDA-Public Use
  Company Number: None

PATIENT
  Age: 60 Year
  Sex: Male

DRUGS (1)
  1. NOREPINEPHRINE [Suspect]
     Indication: HYPOTENSION
     Dosage: 7.5 MCG OTHER IV
     Route: 042
     Dates: start: 20090308, end: 20090319

REACTIONS (4)
  - LIVEDO RETICULARIS [None]
  - PERIPHERAL ISCHAEMIA [None]
  - PULSE ABSENT [None]
  - SKIN DISCOLOURATION [None]
